FAERS Safety Report 6384643-4 (Version None)
Quarter: 2009Q4

REPORT INFORMATION
  Report Type: 
  Country: None (occurrence: None)
  Receive Date: 20091001
  Receipt Date: 20090923
  Transmission Date: 20100525
  Serious: Yes (Hospitalization, Other)
  Sender: FDA-Public Use
  Company Number: PHHO2009DE08944

PATIENT
  Sex: Male

DRUGS (1)
  1. AMN107 AMN+CAP [Suspect]
     Indication: CHRONIC MYELOID LEUKAEMIA
     Dosage: 800 MG DAILY
     Route: 048
     Dates: start: 20050804, end: 20090710

REACTIONS (4)
  - CHRONIC MYELOID LEUKAEMIA [None]
  - HYPERTENSION [None]
  - HYPERTENSIVE CRISIS [None]
  - SYNCOPE [None]
